FAERS Safety Report 22974536 (Version 4)
Quarter: 2023Q4

REPORT INFORMATION
  Report Type: Report from Study
  Country: US (occurrence: US)
  Receive Date: 20230923
  Receipt Date: 20231204
  Transmission Date: 20240110
  Serious: No
  Sender: FDA-Public Use
  Company Number: US-002147023-NVSC2023US205898

PATIENT
  Age: 53 Year
  Sex: Female

DRUGS (16)
  1. COSENTYX [Suspect]
     Active Substance: SECUKINUMAB
     Indication: Psoriasis
     Dosage: 300 MG/KG, QMO
     Route: 058
     Dates: start: 20230302
  2. COSENTYX [Suspect]
     Active Substance: SECUKINUMAB
     Dosage: 300 MG, Q4W
     Route: 058
     Dates: start: 20230821
  3. HYDROCHLOROTHIAZIDE [Concomitant]
     Active Substance: HYDROCHLOROTHIAZIDE
     Indication: Product used for unknown indication
     Dosage: UNK
     Route: 065
  4. UNSPECIFIED INGREDIENT [Concomitant]
     Active Substance: UNSPECIFIED INGREDIENT
     Indication: Product used for unknown indication
     Route: 065
  5. TENORMIN [Concomitant]
     Active Substance: ATENOLOL
     Indication: Product used for unknown indication
     Dosage: 1 DOSAGE FORM, QD
     Route: 048
     Dates: start: 20210624
  6. LIPITOR [Concomitant]
     Active Substance: ATORVASTATIN CALCIUM
     Indication: Product used for unknown indication
     Dosage: UNK
     Route: 065
     Dates: start: 20230207
  7. DOVONEX [Concomitant]
     Active Substance: CALCIPOTRIENE
     Indication: Product used for unknown indication
     Dosage: UNK, BID
     Route: 065
     Dates: start: 20220128
  8. TACLONEX [Concomitant]
     Active Substance: BETAMETHASONE DIPROPIONATE\CALCIPOTRIENE\CALCIPOTRIENE HYDRATE
     Indication: Product used for unknown indication
     Dosage: 0.005-0.064 %, QD X 6 WEEKS THEN SPARINGLY AS NEEDED
     Route: 065
     Dates: start: 20220411
  9. TEMOVATE [Concomitant]
     Active Substance: CLOBETASOL PROPIONATE
     Indication: Product used for unknown indication
     Dosage: UNK, TWICE DAILY FOR 2 WEEKS THEN SPARINGLY 2-3 DAYS/WEEK AS NEEDED,
     Route: 065
     Dates: start: 20220128
  10. TEMOVATE [Concomitant]
     Active Substance: CLOBETASOL PROPIONATE
     Indication: Product used for unknown indication
     Route: 065
  11. LOTRISONE [Concomitant]
     Active Substance: BETAMETHASONE DIPROPIONATE\CLOTRIMAZOLE
     Indication: Product used for unknown indication
     Dosage: UNK, TWICE DAILY X 2 WEEKS THEN SPARINGLY 2-1 DAYS PER WEEK AS NEEDED
     Route: 065
  12. DERMA-SMOOTHE/FS [Concomitant]
     Active Substance: FLUOCINOLONE ACETONIDE
     Indication: Product used for unknown indication
     Dosage: UNK, 2-3 NIGHTS PER WEEK AS NEEDED
     Route: 065
     Dates: start: 20220411
  13. HYTONE [Concomitant]
     Active Substance: HYDROCORTISONE
     Indication: Product used for unknown indication
     Dosage: UNK, TWICE DAILY X 2-3 CONSECUTIVE DAYS THEN SPARINGLY 2-3 DAYS PER WEEK AS NEEDED
     Route: 065
     Dates: start: 20230727
  14. FLONASE [Concomitant]
     Active Substance: FLUTICASONE PROPIONATE
     Indication: Product used for unknown indication
     Dosage: 50 MCG, 2 SPRAYS IN EACH NOSTRIL DAILY
     Route: 045
     Dates: start: 20230818
  15. MOTRIN [Concomitant]
     Active Substance: IBUPROFEN
     Indication: Product used for unknown indication
     Dosage: 1 DOSAGE FORM, Q8H
     Route: 048
     Dates: start: 20220913
  16. LINZESS [Concomitant]
     Active Substance: LINACLOTIDE
     Indication: Constipation
     Dosage: 72 MCG, QD (1 CAPSULE DAILY)
     Route: 048
     Dates: start: 20221224

REACTIONS (11)
  - Nasal congestion [Recovering/Resolving]
  - Intentional dose omission [Unknown]
  - Upper respiratory tract infection [Unknown]
  - Productive cough [Unknown]
  - Infection [Unknown]
  - Conjunctival discolouration [Recovering/Resolving]
  - Eyelid margin crusting [Not Recovered/Not Resolved]
  - Eye pruritus [Recovering/Resolving]
  - Conjunctivitis bacterial [Recovering/Resolving]
  - Psoriasis [Unknown]
  - Condition aggravated [Unknown]

NARRATIVE: CASE EVENT DATE: 20230817
